FAERS Safety Report 16182427 (Version 1)
Quarter: 2019Q2

REPORT INFORMATION
  Report Type: Spontaneous
  Country: DE (occurrence: DE)
  Receive Date: 20190410
  Receipt Date: 20190410
  Transmission Date: 20190711
  Serious: Yes (Other)
  Sender: FDA-Public Use
  Company Number: DE-ANIPHARMA-2019-DE-000046

PATIENT
  Sex: Female
  Weight: 57 kg

DRUGS (2)
  1. ANASTROZOLE. [Suspect]
     Active Substance: ANASTROZOLE
     Indication: BREAST CANCER METASTATIC
     Dosage: 1 MG UNK
     Route: 048
     Dates: start: 20190109
  2. RIBOCICLIB. [Suspect]
     Active Substance: RIBOCICLIB
     Dosage: 600 MG DAILY
     Route: 048
     Dates: start: 20190117

REACTIONS (2)
  - Neutropenia [Recovered/Resolved]
  - White blood cell count decreased [Unknown]

NARRATIVE: CASE EVENT DATE: 20190227
